FAERS Safety Report 6073700-8 (Version None)
Quarter: 2009Q1

REPORT INFORMATION
  Report Type: 
  Country: None (occurrence: None)
  Receive Date: 20090211
  Receipt Date: 20090204
  Transmission Date: 20090719
  Serious: Yes (Other)
  Sender: FDA-Public Use
  Company Number: US-ELI_LILLY_AND_COMPANY-US200902000753

PATIENT
  Sex: Female

DRUGS (2)
  1. HUMALOG [Suspect]
  2. LANTUS [Concomitant]

REACTIONS (3)
  - EYE HAEMORRHAGE [None]
  - MACULAR DEGENERATION [None]
  - VISUAL ACUITY REDUCED [None]
